FAERS Safety Report 23023614 (Version 1)
Quarter: 2023Q4

REPORT INFORMATION
  Report Type: Spontaneous
  Country: US (occurrence: US)
  Receive Date: 20231003
  Receipt Date: 20231003
  Transmission Date: 20240110
  Serious: No
  Sender: FDA-Public Use
  Company Number: US-BRISTOL-MYERS SQUIBB COMPANY-2023-139441

PATIENT
  Age: 63 Year
  Sex: Female
  Weight: 47.62 kg

DRUGS (1)
  1. REVLIMID [Suspect]
     Active Substance: LENALIDOMIDE
     Indication: Amyloidosis
     Dosage: 21D OF 28D
     Route: 048
     Dates: start: 20230801

REACTIONS (1)
  - Off label use [Unknown]
